FAERS Safety Report 17075534 (Version 1)
Quarter: 2019Q4

REPORT INFORMATION
  Report Type: Spontaneous
  Country: US (occurrence: US)
  Receive Date: 20191126
  Receipt Date: 20191126
  Transmission Date: 20200122
  Serious: No
  Sender: FDA-Public Use
  Company Number: US-PFIZER INC-2019501630

PATIENT
  Age: 56 Year
  Weight: 99.79 kg

DRUGS (2)
  1. SKELAXIN [Suspect]
     Active Substance: METAXALONE
     Indication: BACK DISORDER
  2. SKELAXIN [Suspect]
     Active Substance: METAXALONE
     Indication: POLYNEUROPATHY
     Dosage: 800 MG, 3X/DAY
     Route: 048

REACTIONS (4)
  - Nerve compression [Unknown]
  - Withdrawal syndrome [Unknown]
  - Paraesthesia [Unknown]
  - Dizziness [Unknown]
